FAERS Safety Report 6241022-8 (Version None)
Quarter: 2009Q2

REPORT INFORMATION
  Report Type: 
  Country: None (occurrence: None)
  Receive Date: 20090623
  Receipt Date: 20090618
  Transmission Date: 20091009
  Serious: Yes (Other)
  Sender: FDA-Public Use
  Company Number: Z0001020A

PATIENT
  Sex: Male
  Weight: 94 kg

DRUGS (3)
  1. OFATUMUMAB [Suspect]
     Indication: CHRONIC LYMPHOCYTIC LEUKAEMIA
     Route: 042
     Dates: start: 20090422
  2. CHLORAMBUCIL [Suspect]
     Indication: CHRONIC LYMPHOCYTIC LEUKAEMIA
     Dosage: 294MG CUMULATIVE DOSE
     Route: 048
     Dates: start: 20090422
  3. BISEPTOL [Concomitant]
     Indication: ANTIFUNGAL PROPHYLAXIS
     Dosage: 1920MG TWO TIMES PER WEEK
     Route: 048
     Dates: start: 20090422

REACTIONS (1)
  - NEUTROPENIA [None]
